FAERS Safety Report 13126166 (Version 1)
Quarter: 2017Q1

REPORT INFORMATION
  Report Type: Report from Study
  Country: US (occurrence: US)
  Receive Date: 20170118
  Receipt Date: 20170118
  Transmission Date: 20170428
  Serious: Yes (Hospitalization, Other)
  Sender: FDA-Public Use
  Company Number: US-009507513-1701USA005877

PATIENT
  Age: 72 Year
  Sex: Male
  Weight: 99.77 kg

DRUGS (9)
  1. TAFINLAR [Suspect]
     Active Substance: DABRAFENIB MESYLATE
     Indication: MALIGNANT MELANOMA
     Dosage: 150 MG, BID (TWO IN MORNING AND TWO IN THE EVENING)
     Route: 048
     Dates: start: 20161229
  2. PEMBROLIZUMAB. [Suspect]
     Active Substance: PEMBROLIZUMAB
     Indication: MALIGNANT MELANOMA
     Dosage: UNK, Q3W
     Route: 042
     Dates: start: 20161208, end: 20161208
  3. MEKINIST [Suspect]
     Active Substance: TRAMETINIB DIMETHYL SULFOXIDE
     Indication: MALIGNANT MELANOMA
     Dosage: 2 MG, QD
     Route: 048
     Dates: start: 20161229
  4. ATORVASTATIN [Concomitant]
     Active Substance: ATORVASTATIN
     Dosage: UNK
  5. GABAPENTIN. [Concomitant]
     Active Substance: GABAPENTIN
     Dosage: UNK
  6. ASPIRIN. [Concomitant]
     Active Substance: ASPIRIN
     Dosage: 81 MG, UNK
     Route: 048
  7. FOSINOPRIL SODIUM. [Concomitant]
     Active Substance: FOSINOPRIL SODIUM
     Dosage: UNK
  8. DODEX [Concomitant]
     Active Substance: CYANOCOBALAMIN
     Dosage: UNK
  9. METFORMIN [Concomitant]
     Active Substance: METFORMIN HYDROCHLORIDE
     Dosage: UNK

REACTIONS (18)
  - Intra-abdominal fluid collection [Unknown]
  - Heart rate increased [Unknown]
  - Dyspnoea [Unknown]
  - Lethargy [Recovering/Resolving]
  - Constipation [Recovering/Resolving]
  - Weight increased [Recovered/Resolved]
  - Myalgia [Unknown]
  - Polyuria [Unknown]
  - Influenza like illness [Recovered/Resolved]
  - Gastric cancer [Unknown]
  - Productive cough [Not Recovered/Not Resolved]
  - Weight decreased [Unknown]
  - Abdominal distension [Unknown]
  - Bradykinesia [Recovering/Resolving]
  - Urinary retention [Recovered/Resolved]
  - Respiration abnormal [Unknown]
  - Gait disturbance [Recovering/Resolving]
  - Abdominal pain upper [Unknown]

NARRATIVE: CASE EVENT DATE: 201612
